FAERS Safety Report 7426443-X (Version None)
Quarter: 2011Q2

REPORT INFORMATION
  Report Type: 
  Country: None (occurrence: None)
  Receive Date: 20110420
  Receipt Date: 20110318
  Transmission Date: 20111010
  Serious: Yes (Hospitalization)
  Sender: FDA-Public Use
  Company Number: US-BAYER-201022416NA

PATIENT
  Age: 46 Year
  Sex: Female
  Weight: 62.6 kg

DRUGS (9)
  1. CITALOPRAM [Concomitant]
     Dosage: DAILY.
  2. YASMIN [Suspect]
     Indication: PREMENSTRUAL SYNDROME
     Dates: start: 20030701, end: 20040701
  3. FEXOFENADINE [Concomitant]
     Indication: HYPERSENSITIVITY
     Dosage: DAILY.
  4. ALLEGRA [Concomitant]
  5. MULTI-VITAMIN [Concomitant]
     Dosage: ON AND OFF FOR SEVERAL YEARS, 3 TIMES PER WEEK.
  6. SINGULAIR [Concomitant]
  7. MIRCETTE [Concomitant]
     Indication: CONTRACEPTION
  8. CELEXA [Concomitant]
  9. YASMIN [Suspect]
     Indication: MENSTRUAL CYCLE MANAGEMENT

REACTIONS (2)
  - EMBOLISM VENOUS [None]
  - MENSTRUATION IRREGULAR [None]
